FAERS Safety Report 7098745-0 (Version None)
Quarter: 2010Q4

REPORT INFORMATION
  Report Type: 
  Country: None (occurrence: None)
  Receive Date: 20101112
  Receipt Date: 20101105
  Transmission Date: 20110411
  Serious: Yes (Death, Hospitalization)
  Sender: FDA-Public Use
  Company Number: JP-ROCHE-718677

PATIENT
  Sex: Male
  Weight: 50 kg

DRUGS (15)
  1. TOCILIZUMAB [Suspect]
     Indication: RHEUMATOID ARTHRITIS
     Route: 041
     Dates: start: 20091008, end: 20091008
  2. TOCILIZUMAB [Suspect]
     Route: 041
     Dates: start: 20091109, end: 20091109
  3. TOCILIZUMAB [Suspect]
     Route: 041
     Dates: start: 20091207, end: 20091207
  4. TOCILIZUMAB [Suspect]
     Route: 041
     Dates: start: 20100113, end: 20100113
  5. TOCILIZUMAB [Suspect]
     Route: 041
  6. NEOISCOTIN [Concomitant]
     Route: 048
     Dates: start: 20091008
  7. PREDNISOLONE [Concomitant]
     Route: 048
  8. PREDNISOLONE [Concomitant]
     Route: 042
     Dates: start: 20100105
  9. LUPRAC [Concomitant]
     Route: 048
     Dates: end: 20091021
  10. PERSANTIN [Concomitant]
     Route: 048
     Dates: end: 20091021
  11. PYRIDOXAL PHOSPHATE [Concomitant]
     Route: 048
     Dates: start: 20091008
  12. BAKTAR [Concomitant]
     Route: 048
     Dates: start: 20091008
  13. TAKEPRON [Concomitant]
     Route: 048
     Dates: start: 20091008
  14. ESPO [Concomitant]
     Route: 058
     Dates: end: 20091109
  15. ESPO [Concomitant]
     Route: 058
     Dates: start: 20091207, end: 20100104

REACTIONS (8)
  - AMYLOIDOSIS [None]
  - ARTERIOVENOUS SHUNT OPERATION [None]
  - CYTOMEGALOVIRUS INFECTION [None]
  - ENTERITIS INFECTIOUS [None]
  - HISTIOCYTOSIS HAEMATOPHAGIC [None]
  - HYPERURICAEMIA [None]
  - PLATELET COUNT DECREASED [None]
  - RENAL FAILURE [None]
